FAERS Safety Report 5461128-0 (Version None)
Quarter: 2007Q3

REPORT INFORMATION
  Report Type: 
  Country: None (occurrence: None)
  Receive Date: 20070920
  Receipt Date: 20070914
  Transmission Date: 20080115
  Serious: Yes (Other)
  Sender: FDA-Public Use
  Company Number: PHEH2006US06373

PATIENT
  Age: 38 Year
  Sex: Female

DRUGS (2)
  1. ELIDEL [Suspect]
     Indication: VITILIGO
     Dosage: UNK, QD
     Route: 061
     Dates: start: 20020101, end: 20031101
  2. PROTOPIC [Suspect]
     Dosage: UNK, QD
     Route: 061
     Dates: start: 20020101, end: 20031101

REACTIONS (2)
  - BREAST CANCER FEMALE [None]
  - MASTECTOMY [None]
